FAERS Safety Report 8211661-3 (Version None)
Quarter: 2012Q1

REPORT INFORMATION
  Report Type: 
  Country: None (occurrence: None)
  Receive Date: 20120228
  Receipt Date: 20110802
  Transmission Date: 20120608
  Serious: Yes (Other)
  Sender: FDA-Public Use
  Company Number: RB-31089-2011

PATIENT
  Sex: Male

DRUGS (1)
  1. SUBUTEX [Suspect]
     Indication: DRUG DEPENDENCE
     Dosage: (24 MG TAPERED DOWN TO 2 MG TRANSPLACENTAL)
     Route: 064
     Dates: start: 20110201, end: 20110601

REACTIONS (3)
  - DRUG WITHDRAWAL SYNDROME NEONATAL [None]
  - CAESAREAN SECTION [None]
  - MATERNAL DRUGS AFFECTING FOETUS [None]
